FAERS Safety Report 5264555-X (Version None)
Quarter: 2007Q1

REPORT INFORMATION
  Report Type: 
  Country: None (occurrence: None)
  Receive Date: 20061213
  Receipt Date: 20040702
  Transmission Date: 20070707
  Serious: Yes (Other)
  Sender: FDA-Public Use
  Company Number: 2004UW13732

PATIENT
  Age: 67 Year
  Sex: Female

DRUGS (1)
  1. IRESSA [Suspect]
     Indication: BRONCHIOLOALVEOLAR CARCINOMA
     Dosage: 250 MG

REACTIONS (1)
  - BIOPSY STOMACH ABNORMAL [None]
